FAERS Safety Report 7998137-3 (Version None)
Quarter: 2011Q4

REPORT INFORMATION
  Report Type: 
  Country: None (occurrence: None)
  Receive Date: 20111221
  Receipt Date: 20110302
  Transmission Date: 20120403
  Serious: No
  Sender: FDA-Public Use
  Company Number: US-GLAXOSMITHKLINE-A0916346A

PATIENT
  Age: 56 Year
  Sex: Female

DRUGS (7)
  1. METFORMIN HCL [Concomitant]
  2. ATENOLOL [Concomitant]
  3. LISINOPRIL [Concomitant]
  4. GLUCOPHAGE [Concomitant]
  5. LOVAZA [Suspect]
     Indication: BLOOD TRIGLYCERIDES INCREASED
     Dosage: 4G PER DAY
     Route: 048
     Dates: start: 20110201
  6. SIMVASTATIN [Concomitant]
  7. HYDROCHLOROTHIAZIDE [Concomitant]

REACTIONS (5)
  - RASH [None]
  - INCORRECT STORAGE OF DRUG [None]
  - DRUG ADMINISTRATION ERROR [None]
  - WRONG TECHNIQUE IN DRUG USAGE PROCESS [None]
  - ACNE [None]
